FAERS Safety Report 4789329-5 (Version None)
Quarter: 2005Q3

REPORT INFORMATION
  Report Type: 
  Country: None (occurrence: None)
  Receive Date: 20050929
  Receipt Date: 20050809
  Transmission Date: 20060218
  Serious: No
  Sender: FDA-Public Use
  Company Number: 05P-163-0307868-00

PATIENT
  Age: 55 Year
  Sex: Female
  Weight: 70.3075 kg

DRUGS (12)
  1. HUMIRA                     (ADALIMUMAB) [Suspect]
     Indication: RHEUMATOID ARTHRITIS
     Dosage: 40 MG, 1 IN 10 D, SUBCUTANEOUS
     Route: 058
     Dates: start: 20050501
  2. METHOTREXATE SODIUM [Concomitant]
  3. HYDROXYCHLOROQUINE PHOSPHATE [Concomitant]
  4. RISEDRONATE SODIUM [Concomitant]
  5. ESTRACE [Concomitant]
  6. ATENOLOL [Concomitant]
  7. TRAZODONE HCL [Concomitant]
  8. RESTASIS [Concomitant]
  9. ALPRAZOLAM [Concomitant]
  10. VICODIN [Concomitant]
  11. FOLIC ACID [Concomitant]
  12. LANSOPRAZOLE [Concomitant]

REACTIONS (1)
  - SINUSITIS [None]
